FAERS Safety Report 6023469-8 (Version None)
Quarter: 2008Q4

REPORT INFORMATION
  Report Type: 
  Country: None (occurrence: None)
  Receive Date: 20081222
  Receipt Date: 20080926
  Transmission Date: 20090506
  Serious: No
  Sender: FDA-Public Use
  Company Number: ALL1-2008-03452

PATIENT
  Sex: Female

DRUGS (1)
  1. VYVANSE [Suspect]
     Dosage: ORAL ; 60 MG, ONE DOSE, ORAL
     Route: 048
     Dates: start: 20080926, end: 20080926

REACTIONS (1)
  - ACCIDENTAL OVERDOSE [None]
